FAERS Safety Report 14448107 (Version 3)
Quarter: 2019Q2

REPORT INFORMATION
  Report Type: Spontaneous
  Country: JP (occurrence: JP)
  Receive Date: 20180126
  Receipt Date: 20190416
  Transmission Date: 20190711
  Serious: Yes (Other)
  Sender: FDA-Public Use
  Company Number: JP-ELI_LILLY_AND_COMPANY-JP201801011011

PATIENT
  Age: 77 Year
  Sex: Female
  Weight: 40 kg

DRUGS (7)
  1. DEXART [Concomitant]
     Active Substance: DEXAMETHASONE SODIUM PHOSPHATE
     Indication: PROPHYLAXIS OF NAUSEA AND VOMITING
     Dosage: 6.6 MG, CYCLICAL
     Route: 041
     Dates: start: 20170920, end: 20171227
  2. FAMOTIDINE. [Concomitant]
     Active Substance: FAMOTIDINE
     Indication: ALLERGY PROPHYLAXIS
     Dosage: 20 MG, DAILY
     Route: 041
     Dates: start: 20170920, end: 20171227
  3. PACLITAXEL. [Suspect]
     Active Substance: PACLITAXEL
     Indication: GASTRIC CANCER STAGE IV
     Dosage: 80 MG, WEEKLY (1/W)
     Route: 041
     Dates: start: 20170920, end: 20170927
  4. AMLODIPINE [Concomitant]
     Active Substance: AMLODIPINE BESYLATE
     Indication: HYPERTENSION
     Dosage: 0.25 MG, DAILY
     Route: 048
  5. CYRAMZA [Suspect]
     Active Substance: RAMUCIRUMAB
     Indication: GASTRIC CANCER STAGE IV
     Dosage: 300 MG, 2/W
     Route: 041
     Dates: start: 20170920, end: 20171018
  6. PACLITAXEL. [Suspect]
     Active Substance: PACLITAXEL
     Dosage: 60 MG, 2/W
     Route: 041
     Dates: start: 20171018, end: 20171227
  7. GRANISETRON [Concomitant]
     Active Substance: GRANISETRON
     Indication: PROPHYLAXIS OF NAUSEA AND VOMITING
     Dosage: 3 MG, CYCLICAL
     Route: 041
     Dates: start: 20170920, end: 20171227

REACTIONS (4)
  - Protein urine [Not Recovered/Not Resolved]
  - Cardiac ventricular thrombosis [Not Recovered/Not Resolved]
  - Malignant neoplasm progression [Unknown]
  - Neutrophil count decreased [Recovered/Resolved]

NARRATIVE: CASE EVENT DATE: 20171004
